FAERS Safety Report 24802942 (Version 2)
Quarter: 2025Q1

REPORT INFORMATION
  Report Type: Report from Study
  Country: US (occurrence: US)
  Receive Date: 20250103
  Receipt Date: 20250324
  Transmission Date: 20250409
  Serious: Yes (Hospitalization)
  Sender: RECORDATI
  Company Number: US-RECORDATI RARE DISEASE INC.-2024010352

PATIENT
  Sex: Male
  Weight: 21 kg

DRUGS (5)
  1. CARBAGLU [Suspect]
     Active Substance: CARGLUMIC ACID
     Indication: Propionic acidaemia
     Dosage: 1000 MG, QID (5 TABLETS IN 2.5 ML OF WATER PER TABLET AND TAKE BY MOUTH FOUR TIMES PER DAY)
     Route: 048
     Dates: start: 20180428
  2. CARBAGLU [Suspect]
     Active Substance: CARGLUMIC ACID
     Dosage: 1000 MG, QID  (5 TABLETS IN 2.5 ML OF WATER PER TABLET AND TAKE BY MOUTH FOUR TIMES PER DAY)
     Route: 048
     Dates: start: 20180428
  3. COENZYME Q10 [Concomitant]
     Active Substance: DIETARY SUPPLEMENT\UBIDECARENONE
     Indication: Product used for unknown indication
  4. PHENOBARBITAL [Concomitant]
     Active Substance: PHENOBARBITAL
     Indication: Product used for unknown indication
  5. LEVOCARNITINE [Concomitant]
     Active Substance: LEVOCARNITINE
     Indication: Product used for unknown indication

REACTIONS (1)
  - Influenza like illness [Recovering/Resolving]

NARRATIVE: CASE EVENT DATE: 20240101
